FAERS Safety Report 14931097 (Version 2)
Quarter: 2018Q4

REPORT INFORMATION
  Report Type: Spontaneous
  Country: FR (occurrence: FR)
  Receive Date: 20180524
  Receipt Date: 20181009
  Transmission Date: 20190204
  Serious: Yes (Hospitalization)
  Sender: FDA-Public Use
  Company Number: FR-TEVA-2018-FR-896759

PATIENT
  Age: 76 Year
  Sex: Female

DRUGS (13)
  1. DOXORUBICINE TEVA [Suspect]
     Active Substance: DOXORUBICIN
     Indication: DIFFUSE LARGE B-CELL LYMPHOMA STAGE I
     Route: 042
     Dates: start: 20171228, end: 20171228
  2. ENDOXAN [Suspect]
     Active Substance: CYCLOPHOSPHAMIDE
     Indication: DIFFUSE LARGE B-CELL LYMPHOMA STAGE I
     Route: 042
     Dates: start: 20171228, end: 20171228
  3. IPERTEN 10 MG, COMPRIM? [Concomitant]
     Indication: HYPERTENSION
     Dosage: 10 MILLIGRAM DAILY;
     Route: 048
     Dates: start: 201207
  4. MABTHERA [Suspect]
     Active Substance: RITUXIMAB
     Indication: DIFFUSE LARGE B-CELL LYMPHOMA STAGE I
     Route: 042
     Dates: start: 20171228, end: 20171228
  5. BACTRIM [Concomitant]
     Active Substance: SULFAMETHOXAZOLE\TRIMETHOPRIM
     Route: 048
     Dates: start: 20171213
  6. FENOFIBRATE. [Concomitant]
     Active Substance: FENOFIBRATE
     Indication: DYSLIPIDAEMIA
     Dosage: 300 MILLIGRAM DAILY;
     Route: 048
     Dates: start: 201207
  7. SERESTA [Concomitant]
     Active Substance: OXAZEPAM
     Dosage: 1 DOSAGE FORMS DAILY;
     Route: 048
     Dates: start: 20171115
  8. OXEOL [Concomitant]
     Active Substance: BAMBUTEROL HYDROCHLORIDE
     Route: 048
     Dates: start: 200807
  9. ZELITREX [Concomitant]
     Active Substance: VALACYCLOVIR HYDROCHLORIDE
     Dosage: 1 DOSAGE FORMS DAILY;
     Route: 048
     Dates: start: 20171213
  10. VINCRISTINE HOSPIRA 2 MG/2 ML, SOLUTION INJECTABLE [Suspect]
     Active Substance: VINCRISTINE SULFATE
     Indication: DIFFUSE LARGE B-CELL LYMPHOMA STAGE I
     Route: 042
     Dates: start: 20171228, end: 20171228
  11. OMEPRAZOLE MYLAN [Concomitant]
     Active Substance: OMEPRAZOLE
     Dosage: 1 DOSAGE FORMS DAILY;
     Route: 048
     Dates: start: 20171213
  12. STRIVERDI RESPIMAT 2,5 MICROGRAMMES/DOSE, SOLUTION POUR INHALATION [Concomitant]
     Route: 055
     Dates: start: 201601
  13. SPECIAFOLDINE 5 MG, COMPRIM? [Concomitant]
     Active Substance: FOLIC ACID
     Dosage: 2 DOSAGE FORMS DAILY;
     Route: 048
     Dates: start: 20171213

REACTIONS (1)
  - Hyponatraemia [Recovering/Resolving]

NARRATIVE: CASE EVENT DATE: 20180106
